FAERS Safety Report 12557289 (Version 1)
Quarter: 2016Q3

REPORT INFORMATION
  Report Type: Spontaneous
  Country: US (occurrence: US)
  Receive Date: 20160714
  Receipt Date: 20160714
  Transmission Date: 20161109
  Serious: No
  Sender: FDA-Public Use
  Company Number: US-BAYER-2016-137766

PATIENT
  Age: 71 Year
  Sex: Female
  Weight: 90.7 kg

DRUGS (2)
  1. ALEVE [Suspect]
     Active Substance: NAPROXEN SODIUM
     Indication: ARTHRALGIA
     Dosage: 1 DF, PRN; CONSUMER STARTED TO USE THE PRODUCT PROBABLY IN THE LAST YEAR
     Route: 048
  2. BENADRYL [Concomitant]
     Active Substance: DIPHENHYDRAMINE HYDROCHLORIDE

REACTIONS (3)
  - Restlessness [None]
  - Expired product administered [None]
  - Insomnia [None]

NARRATIVE: CASE EVENT DATE: 20160711
